FAERS Safety Report 6546801-5 (Version None)
Quarter: 2010Q1

REPORT INFORMATION
  Report Type: 
  Country: None (occurrence: None)
  Receive Date: 20100119
  Receipt Date: 20100104
  Transmission Date: 20100710
  Serious: Yes (Hospitalization)
  Sender: FDA-Public Use
  Company Number: 2009AC000089

PATIENT
  Age: 55 Year
  Sex: Female

DRUGS (45)
  1. DIGOXIN [Suspect]
     Dosage: 0.125 MG;QOD;PO
     Route: 048
  2. ACCUPRIL [Concomitant]
  3. COREG [Concomitant]
  4. NEPHOCAPS [Concomitant]
  5. EFFEXOR [Concomitant]
  6. AMBIEN [Concomitant]
  7. HYDROXYZINE [Concomitant]
  8. LORCET-HD [Concomitant]
  9. PHOSLO [Concomitant]
  10. IMDUR [Concomitant]
  11. INSULIN [Concomitant]
  12. LIPITOR [Concomitant]
  13. BACTRIM [Concomitant]
  14. LASIX [Concomitant]
  15. IRON [Concomitant]
  16. ASPIRIN [Concomitant]
  17. NOVOLIN [Concomitant]
  18. MONOLIN [Concomitant]
  19. MONOPRIL [Concomitant]
  20. HYDROCODONE [Concomitant]
  21. OXYCODONE [Concomitant]
  22. ASPIRIN [Concomitant]
  23. COREG [Concomitant]
  24. LISINOPRIL [Concomitant]
  25. EFFEXOR [Concomitant]
  26. BUMEX [Concomitant]
  27. IMDUR [Concomitant]
  28. NIFEDIPINE [Concomitant]
  29. LIPITOR [Concomitant]
  30. IRON [Concomitant]
  31. VITAMIN C [Concomitant]
  32. ZINC SULFATE [Concomitant]
  33. SPIRONOLACTONE [Concomitant]
  34. HYDROXCHLOROTHIAZIDE [Concomitant]
  35. FOSINOPRIL SODIUM [Concomitant]
  36. ECOTRIN [Concomitant]
  37. INSULIN [Concomitant]
  38. EFFEXOR [Concomitant]
  39. LISINOPRIL [Concomitant]
  40. LIPITOR [Concomitant]
  41. NIFEDIPINE [Concomitant]
  42. ISOSORBIDE [Concomitant]
  43. NOVOLIN [Concomitant]
  44. BUMETANIDE [Concomitant]
  45. NEXIUM [Concomitant]

REACTIONS (26)
  - ANAEMIA [None]
  - BLADDER PROLAPSE [None]
  - CARDIAC FAILURE CONGESTIVE [None]
  - CARDIAC VALVE DISEASE [None]
  - CARPAL TUNNEL SYNDROME [None]
  - CERVICOBRACHIAL SYNDROME [None]
  - CHRONIC OBSTRUCTIVE PULMONARY DISEASE [None]
  - CONDITION AGGRAVATED [None]
  - CORONARY ARTERY DISEASE [None]
  - DECREASED APPETITE [None]
  - DEHYDRATION [None]
  - DEPRESSION [None]
  - DIABETES MELLITUS INADEQUATE CONTROL [None]
  - HYPERLIPIDAEMIA [None]
  - HYPERVENTILATION [None]
  - HYPOAESTHESIA [None]
  - INJURY [None]
  - MUSCULAR WEAKNESS [None]
  - NECK PAIN [None]
  - NEUROPATHIC ARTHROPATHY [None]
  - ORTHOSTATIC HYPOTENSION [None]
  - PAIN [None]
  - PARAESTHESIA [None]
  - RENAL FAILURE ACUTE [None]
  - RENAL FAILURE CHRONIC [None]
  - URINARY TRACT INFECTION [None]
